FAERS Safety Report 8528952-9 (Version None)
Quarter: 2012Q3

REPORT INFORMATION
  Report Type: 
  Country: None (occurrence: None)
  Receive Date: 20120723
  Receipt Date: 20120717
  Transmission Date: 20120928
  Serious: No
  Sender: FDA-Public Use
  Company Number: US-PFIZER INC-2012005617

PATIENT
  Sex: Female

DRUGS (2)
  1. GEODON [Suspect]
     Dosage: UNK
  2. PRISTIQ [Suspect]
     Dosage: UNK

REACTIONS (6)
  - DYSPHEMIA [None]
  - SPEECH DISORDER [None]
  - THINKING ABNORMAL [None]
  - MALAISE [None]
  - DISTURBANCE IN ATTENTION [None]
  - NIGHTMARE [None]
